FAERS Safety Report 9843488 (Version 1)
Quarter: 2013Q4

REPORT INFORMATION
  Report Type: Spontaneous
  Country: US (occurrence: None)
  Receive Date: 20131219
  Receipt Date: 20131219
  Transmission Date: 20140711
  Serious: Yes (Death)
  Sender: FDA-Public Use
  Company Number: 163-20785-13063649

PATIENT
  Age: 74 Year
  Sex: Male
  Weight: 76.2 kg

DRUGS (14)
  1. THALOMID (THALIDOMIDE) (CAPSULES) [Suspect]
     Indication: PLASMA CELL MYELOMA
     Route: 048
     Dates: start: 20130515, end: 20130528
  2. MELPHALAN (MELPHALAN) [Concomitant]
  3. PREDNISONE (PREDNISONE) [Concomitant]
  4. COUMADIN (WARFARIN SODIUM) [Concomitant]
  5. DIGOXIN (DIGOXIN) [Concomitant]
  6. FENTANYL (FENTANYL) (POULTICE OR PATCH) [Concomitant]
  7. LORTAB (VICODIN) [Concomitant]
  8. MAGNESIUM (MAGNESIUM) [Concomitant]
  9. MEGACE (MEGESTROL ACETATE) [Concomitant]
  10. NITROGLYCERIN (GLYCERYL TRINITRATE) [Concomitant]
  11. COMPAZINE (PROCHLORPERAZINE EDISYLATE) [Concomitant]
  12. TEMAZEPAM (TEMAZEPAM) [Concomitant]
  13. ZANTAC (RANITIDINE HYDROCHLORIDE) [Concomitant]
  14. ZOFRAN (ONDANSETRON HYDROCHLORIDE) [Concomitant]

REACTIONS (1)
  - Myocardial infarction [None]
